FAERS Safety Report 5723224-X (Version None)
Quarter: 2008Q2

REPORT INFORMATION
  Report Type: 
  Country: None (occurrence: None)
  Receive Date: 20080430
  Receipt Date: 20080423
  Transmission Date: 20081010
  Serious: Yes (Life-Threatening, Hospitalization)
  Sender: FDA-Public Use
  Company Number: GR-WYE-G01306908

PATIENT
  Age: 41 Year
  Sex: Female
  Weight: 60 kg

DRUGS (2)
  1. EFFEXOR XR [Suspect]
     Indication: DEPRESSION
     Dosage: 20-40 CAPSULES
     Route: 048
     Dates: start: 20080215, end: 20080215
  2. XANAX [Suspect]
     Indication: DEPRESSION
     Dosage: 90 CAPSULES
     Route: 048
     Dates: start: 20080215, end: 20080215

REACTIONS (9)
  - CARDIAC FAILURE [None]
  - CARDIOMYOPATHY [None]
  - CARDIOTOXICITY [None]
  - COMA [None]
  - DRUG ABUSE [None]
  - HYPOTHERMIA [None]
  - INTENTIONAL OVERDOSE [None]
  - MYOCARDIAL OEDEMA [None]
  - SUICIDE ATTEMPT [None]
